FAERS Safety Report 17213152 (Version 1)
Quarter: 2020Q1

REPORT INFORMATION
  Report Type: Spontaneous
  Country: US (occurrence: US)
  Receive Date: 20191227
  Receipt Date: 20191227
  Transmission Date: 20200409
  Serious: Yes (Life-Threatening, Disabling, Other)
  Sender: FDA-Public Use
  Company Number: None

PATIENT
  Age: 72 Year
  Sex: Male
  Weight: 81 kg

DRUGS (17)
  1. SIMBACORT [Concomitant]
  2. ACYCLOVIR 400MG [Concomitant]
     Active Substance: ACYCLOVIR
  3. METHYLPHENIDATE 20MG [Concomitant]
     Active Substance: METHYLPHENIDATE
  4. MULTIVITAMINS WITH MINERALS [Concomitant]
     Active Substance: MINERALS\VITAMINS
  5. TADALAFIL. [Concomitant]
     Active Substance: TADALAFIL
  6. POTASSIUM CHLORIDE CL ER [Concomitant]
  7. MONTELUKAST SODIUM. [Concomitant]
     Active Substance: MONTELUKAST SODIUM
  8. OCTAGAM IMMUNE GLOBULIN (HUMAN) [Suspect]
     Active Substance: HUMAN IMMUNOGLOBULIN G
     Indication: PRIMARY IMMUNODEFICIENCY SYNDROME
     Dosage: ?          QUANTITY:50000 IU;OTHER FREQUENCY:MONTHLY;?
     Route: 042
     Dates: start: 20061202, end: 20191226
  9. BOTOX [Concomitant]
     Active Substance: ONABOTULINUMTOXINA
  10. FISH OIL [Concomitant]
     Active Substance: FISH OIL
  11. GLUCOSAMINE [Concomitant]
     Active Substance: GLUCOSAMINE
  12. MELATONIN 10MG [Concomitant]
  13. OCTAGAM IMMUNE GLOBULIN (HUMAN) [Suspect]
     Active Substance: HUMAN IMMUNOGLOBULIN G
     Indication: HYPER IGM SYNDROME
     Dosage: ?          QUANTITY:50000 IU;OTHER FREQUENCY:MONTHLY;?
     Route: 042
     Dates: start: 20061202, end: 20191226
  14. PSEUDOEPHEDRINE. [Concomitant]
     Active Substance: PSEUDOEPHEDRINE HYDROCHLORIDE
  15. COENZYME Q10 [Concomitant]
     Active Substance: UBIDECARENONE
  16. WARFARIN 10MG TAB CIT, 10 MG WALMART [Concomitant]
     Active Substance: WARFARIN
  17. TUMERIC AND CAPSAICIN [Concomitant]

REACTIONS (2)
  - Endocarditis [None]
  - Q fever [None]

NARRATIVE: CASE EVENT DATE: 20190805
